FAERS Safety Report 22115963 (Version 10)
Quarter: 2025Q4

REPORT INFORMATION
  Report Type: Report from Study
  Country: US (occurrence: US)
  Receive Date: 20230320
  Receipt Date: 20251231
  Transmission Date: 20260118
  Serious: No
  Sender: PFIZER
  Company Number: US-PFIZER INC-2021336097

PATIENT
  Age: 87 Year
  Sex: Female
  Weight: 85.6 kg

DRUGS (2)
  1. IBRANCE [Suspect]
     Active Substance: PALBOCICLIB
     Indication: Breast cancer female
     Dosage: 100 MG, CYCLIC (TAKE ONE TABLET DAILY FOR 14 DAYS ON AND 14 DAYS OFF)
     Route: 048
     Dates: start: 20200421
  2. FULVESTRANT [Concomitant]
     Active Substance: FULVESTRANT
     Indication: Breast cancer female
     Dosage: UNK (EVERY 4 WEEKS)
     Dates: start: 20200501

REACTIONS (2)
  - Constipation [Recovered/Resolved]
  - Bowel movement irregularity [Unknown]

NARRATIVE: CASE EVENT DATE: 20230301
